FAERS Safety Report 9214094 (Version 4)
Quarter: 2013Q3

REPORT INFORMATION
  Report Type: Report from Study
  Country: US (occurrence: US)
  Receive Date: 20130405
  Receipt Date: 20130906
  Transmission Date: 20140515
  Serious: Yes (Hospitalization)
  Sender: FDA-Public Use
  Company Number: US-PFIZER INC-2013098007

PATIENT
  Age: 68 Year
  Sex: Male

DRUGS (13)
  1. SUNITINIB MALATE [Suspect]
     Indication: METASTATIC RENAL CELL CARCINOMA
     Dosage: 50 MG, 1X/DAY
     Route: 048
     Dates: start: 20130214
  2. BMS-936558 [Suspect]
     Indication: METASTATIC RENAL CELL CARCINOMA
     Dosage: UNK, EVERY 3 WEEKS
     Route: 042
     Dates: start: 20130214
  3. ASPIRIN [Concomitant]
     Dosage: UNK
     Dates: start: 2007
  4. MAGIC MOUTHWASH [Concomitant]
     Dosage: UNK
     Dates: start: 2013
  5. OMEGA-3 [Concomitant]
     Dosage: UNK
     Dates: start: 2007
  6. OMEPRAZOLE [Concomitant]
     Dosage: UNK
     Dates: start: 2011
  7. LOSARTAN [Concomitant]
     Dosage: UNK
     Dates: start: 20130118
  8. VENTOLIN [Concomitant]
     Dosage: UNK
     Dates: start: 20130124
  9. NITROGLICERIN [Concomitant]
     Dosage: UNK
     Dates: start: 20130124
  10. DUONEB [Concomitant]
  11. PROVENTIL [Concomitant]
  12. ACETAMINOPHEN [Concomitant]
  13. ONDANSETRON [Concomitant]

REACTIONS (3)
  - Thrombocytopenia [Recovered/Resolved]
  - Renal failure acute [Recovered/Resolved]
  - Dehydration [Recovered/Resolved]
